FAERS Safety Report 6651133-0 (Version None)
Quarter: 2010Q1

REPORT INFORMATION
  Report Type: 
  Country: None (occurrence: None)
  Receive Date: 20100325
  Receipt Date: 20100316
  Transmission Date: 20100710
  Serious: Yes (Other)
  Sender: FDA-Public Use
  Company Number: FR-JNJFOC-20100305110

PATIENT
  Sex: Female

DRUGS (2)
  1. REMICADE [Suspect]
     Indication: RHEUMATOID ARTHRITIS
     Dosage: 9 INFUSION
     Route: 042
  2. REMICADE [Suspect]
     Route: 042

REACTIONS (3)
  - FLUSHING [None]
  - INFUSION RELATED REACTION [None]
  - MYOCLONUS [None]
